FAERS Safety Report 18676762 (Version 2)
Quarter: 2022Q3

REPORT INFORMATION
  Report Type: Spontaneous
  Country: US (occurrence: US)
  Receive Date: 20201229
  Receipt Date: 20220809
  Transmission Date: 20221027
  Serious: Yes (Death, Other)
  Sender: FDA-Public Use
  Company Number: US-PFIZER INC-2020503523

PATIENT
  Age: 23 Year
  Sex: Female

DRUGS (2)
  1. SIROLIMUS [Suspect]
     Active Substance: SIROLIMUS
     Indication: Gorham^s disease
     Dosage: UNK
  2. OCTREOTIDE [Concomitant]
     Active Substance: OCTREOTIDE
     Dosage: UNK

REACTIONS (2)
  - Plasmablastic lymphoma [Fatal]
  - Off label use [Unknown]
